FAERS Safety Report 24358659 (Version 1)
Quarter: 2024Q3

REPORT INFORMATION
  Report Type: Spontaneous
  Country: US (occurrence: US)
  Receive Date: 20240924
  Receipt Date: 20240924
  Transmission Date: 20241016
  Serious: No
  Sender: MYLAN
  Company Number: US-MYLANLABS-2024M1083750

PATIENT
  Sex: Male

DRUGS (1)
  1. TYRVAYA [Suspect]
     Active Substance: VARENICLINE TARTRATE
     Indication: Product used for unknown indication
     Dosage: 0.03 MILLIGRAM, QD (1 TIME IN EACH NOSTRIL)
     Route: 045

REACTIONS (5)
  - Lacrimation increased [Unknown]
  - Drug ineffective [Unknown]
  - Off label use [Unknown]
  - Incorrect product administration duration [Unknown]
  - Product delivery mechanism issue [Unknown]

NARRATIVE: CASE EVENT DATE: 20240901
